FAERS Safety Report 12557980 (Version 4)
Quarter: 2017Q1

REPORT INFORMATION
  Report Type: Spontaneous
  Country: BR (occurrence: BR)
  Receive Date: 20160714
  Receipt Date: 20170313
  Transmission Date: 20170428
  Serious: Yes (Hospitalization, Other)
  Sender: FDA-Public Use
  Company Number: BR-ABBVIE-16P-020-1675736-00

PATIENT
  Sex: Male
  Weight: 146.5 kg

DRUGS (18)
  1. DEPAKENE [Interacting]
     Active Substance: VALPROIC ACID
     Dosage: 3 TABLETS
     Route: 065
     Dates: start: 2014
  2. SYNTHROID [Suspect]
     Active Substance: LEVOTHYROXINE SODIUM
     Indication: HYPOTHYROIDISM
     Route: 065
  3. SYNTHROID [Suspect]
     Active Substance: LEVOTHYROXINE SODIUM
     Route: 065
  4. DEPAKENE [Suspect]
     Active Substance: VALPROIC ACID
     Indication: EPILEPSY
     Dosage: 500 MG; MORNING / NIGHT
     Route: 048
     Dates: start: 2009
  5. ENALAPRIL MALEATE. [Concomitant]
     Active Substance: ENALAPRIL MALEATE
     Indication: HYPERTENSION
     Dosage: DAILY DOSE: 2 TABLET IN THE MORNING
     Route: 048
     Dates: end: 201604
  6. BUPROPION HYDROCHLORIDE. [Concomitant]
     Active Substance: BUPROPION HYDROCHLORIDE
     Indication: LEARNING DISORDER
     Dosage: DAILY DOSE: ^1^
  7. SYNTHROID [Suspect]
     Active Substance: LEVOTHYROXINE SODIUM
     Route: 065
     Dates: end: 201605
  8. SYNTHROID [Suspect]
     Active Substance: LEVOTHYROXINE SODIUM
     Dosage: DAILY DOSE: 100 MCG; BEFORE DAWN
     Route: 048
     Dates: start: 201605
  9. RISPERIDONE. [Concomitant]
     Active Substance: RISPERIDONE
     Indication: PRODUCT USED FOR UNKNOWN INDICATION
  10. NEULEPTIL [Concomitant]
     Active Substance: PERICIAZINE
     Route: 048
  11. LEVOID [Concomitant]
     Active Substance: LEVOTHYROXINE
     Indication: PRODUCT USED FOR UNKNOWN INDICATION
     Dosage: ^1^ AT LATE NIGHT
  12. DEPAKENE [Interacting]
     Active Substance: VALPROIC ACID
     Route: 048
  13. DEPAKENE [Interacting]
     Active Substance: VALPROIC ACID
     Route: 048
  14. HIDANTAL [Interacting]
     Active Substance: PHENYTOIN SODIUM
     Indication: SEIZURE
     Route: 065
     Dates: start: 2014, end: 2014
  15. NEULEPTIL [Concomitant]
     Active Substance: PERICIAZINE
     Indication: OPPOSITIONAL DEFIANT DISORDER
     Dosage: MORNING / NIGHT
     Route: 048
     Dates: start: 2011
  16. LOSARTAN. [Concomitant]
     Active Substance: LOSARTAN
     Indication: HYPERTENSION
     Dosage: MORNING / NIGHT
     Route: 048
     Dates: start: 201604
  17. GARDENAL [Concomitant]
     Active Substance: PHENOBARBITAL
     Indication: PRODUCT USED FOR UNKNOWN INDICATION
     Dates: start: 2009
  18. NEULEPTIL [Concomitant]
     Active Substance: PERICIAZINE
     Route: 048

REACTIONS (12)
  - Drug interaction [Unknown]
  - Iron deficiency [Unknown]
  - Off label use [Unknown]
  - Weight increased [Unknown]
  - Breast enlargement [Unknown]
  - Vomiting [Not Recovered/Not Resolved]
  - Seizure [Recovered/Resolved]
  - Product use issue [Unknown]
  - Eating disorder [Recovered/Resolved]
  - Muscle twitching [Not Recovered/Not Resolved]
  - Seizure [Recovered/Resolved]
  - Obesity [Recovering/Resolving]

NARRATIVE: CASE EVENT DATE: 2014
